FAERS Safety Report 19095559 (Version 2)
Quarter: 2021Q2

REPORT INFORMATION
  Report Type: Spontaneous
  Country: US (occurrence: US)
  Receive Date: 20210406
  Receipt Date: 20210415
  Transmission Date: 20210717
  Serious: Yes (Other)
  Sender: FDA-Public Use
  Company Number: US-LUPIN PHARMACEUTICALS INC.-2021-04193

PATIENT
  Age: 19 Year
  Sex: Female
  Weight: 49.89 kg

DRUGS (2)
  1. NORGESTIMATE AND ETHINYL ESTRADIOL TABLETS USP 0.18 MG/0.035 MG [Suspect]
     Active Substance: ETHINYL ESTRADIOL\NORGESTIMATE
     Indication: CONTRACEPTION
     Dosage: 1 DOSAGE FORM, QD
     Route: 065
  2. NORGESTIMATE AND ETHINYL ESTRADIOL TABLETS USP 0.18 MG/0.035 MG [Suspect]
     Active Substance: ETHINYL ESTRADIOL\NORGESTIMATE
     Dosage: UNK, QD
     Route: 048
     Dates: start: 202101

REACTIONS (2)
  - Coeliac disease [Not Recovered/Not Resolved]
  - Abdominal pain upper [Not Recovered/Not Resolved]
